FAERS Safety Report 22082986 (Version 2)
Quarter: 2023Q2

REPORT INFORMATION
  Report Type: Report from Study
  Country: US (occurrence: US)
  Receive Date: 20230310
  Receipt Date: 20230407
  Transmission Date: 20230722
  Serious: Yes (Hospitalization, Other)
  Sender: FDA-Public Use
  Company Number: US-ABBVIE-4325193

PATIENT
  Age: 66 Year
  Sex: Female

DRUGS (2)
  1. HUMIRA [Suspect]
     Active Substance: ADALIMUMAB
     Indication: Crohn^s disease
     Dosage: CITRATE FREE?FORM STRENGTH: 40 MILLIGRAM
     Route: 058
     Dates: start: 20201129
  2. HUMIRA [Suspect]
     Active Substance: ADALIMUMAB
     Dosage: CITRATE FREE?FORM STRENGTH: 40 MILLIGRAM
     Route: 058
     Dates: start: 20220706, end: 20230403

REACTIONS (8)
  - Dehydration [Not Recovered/Not Resolved]
  - Hernia [Recovered/Resolved with Sequelae]
  - Urinary tract infection [Recovered/Resolved]
  - Cardiac failure [Not Recovered/Not Resolved]
  - Gastrointestinal disorder [Recovered/Resolved with Sequelae]
  - Breast cancer metastatic [Not Recovered/Not Resolved]
  - Upper respiratory tract infection [Recovered/Resolved]
  - Central venous catheterisation [Unknown]

NARRATIVE: CASE EVENT DATE: 20221001
